FAERS Safety Report 8828789 (Version 2)
Quarter: 2012Q4

REPORT INFORMATION
  Report Type: 
  Country: BR (occurrence: BR)
  Receive Date: 20121008
  Receipt Date: 20121101
  Transmission Date: 20130627
  Serious: Yes (Other)
  Sender: FDA-Public Use
  Company Number: BR-ELI_LILLY_AND_COMPANY-BR201210000090

PATIENT
  Age: 43 Year
  Sex: Male
  Weight: 92 kg

DRUGS (3)
  1. CIALIS [Suspect]
     Indication: ERECTILE DYSFUNCTION
     Dosage: 5 mg, qd
     Route: 048
     Dates: start: 20120907
  2. LOSARTAN [Concomitant]
     Dosage: 50 mg, qd
     Route: 048
     Dates: start: 2002
  3. GLIFAGE [Concomitant]
     Dosage: 500 mg, qd
     Route: 048
     Dates: start: 201202

REACTIONS (1)
  - Vision blurred [Recovered/Resolved]
